FAERS Safety Report 21799362 (Version 1)
Quarter: 2022Q4

REPORT INFORMATION
  Report Type: Spontaneous
  Country: US (occurrence: None)
  Receive Date: 20221229
  Receipt Date: 20221229
  Transmission Date: 20230113
  Serious: Yes (Death)
  Sender: FDA-Public Use
  Company Number: None

PATIENT
  Age: 20 Year
  Sex: Female

DRUGS (1)
  1. TISAGENLECLEUCEL [Suspect]
     Active Substance: TISAGENLECLEUCEL
     Indication: Acute lymphocytic leukaemia
     Dates: start: 20221116, end: 20221116

REACTIONS (18)
  - Acute lymphocytic leukaemia recurrent [None]
  - Respiratory depression [None]
  - Disease progression [None]
  - Cytokine release syndrome [None]
  - Pancytopenia [None]
  - Coagulopathy [None]
  - Serum ferritin increased [None]
  - Haemophagocytic lymphohistiocytosis [None]
  - Malignant pleural effusion [None]
  - Hypoxia [None]
  - Tachypnoea [None]
  - Bradycardia [None]
  - Cardiac arrest [None]
  - Pharyngeal haemorrhage [None]
  - Pulseless electrical activity [None]
  - Metabolic acidosis [None]
  - Multiple organ dysfunction syndrome [None]
  - Respiratory failure [None]

NARRATIVE: CASE EVENT DATE: 20221127
